FAERS Safety Report 8596132-7 (Version None)
Quarter: 2012Q3

REPORT INFORMATION
  Report Type: 
  Country: None (occurrence: None)
  Receive Date: 20120807
  Receipt Date: 20120807
  Transmission Date: 20120928
  Serious: Yes (Disabling)
  Sender: FDA-Public Use
  Company Number: None

PATIENT
  Sex: Female
  Weight: 58.9676 kg

DRUGS (2)
  1. LEVOTHYROXINE SODIUM [Suspect]
     Indication: HYPOTHYROIDISM
     Dosage: 0.025MG TABS 1 X DAY BY MOUTH
     Route: 048
  2. SYNTHROID [Suspect]
     Indication: HYPOTHYROIDISM
     Dosage: 0.025MG TABS 1 X DAY BY MOUTH
     Route: 048
     Dates: start: 20110716, end: 20120716

REACTIONS (1)
  - ALOPECIA [None]
